FAERS Safety Report 4289350-X (Version None)
Quarter: 2004Q1

REPORT INFORMATION
  Report Type: 
  Country: None (occurrence: None)
  Receive Date: 20040206
  Receipt Date: 20040130
  Transmission Date: 20041129
  Serious: Yes (Life-Threatening)
  Sender: FDA-Public Use
  Company Number: 2003SE04708

PATIENT
  Age: 32 Year
  Sex: Female

DRUGS (4)
  1. SEROQUEL [Suspect]
     Dosage: 600 MG DAILY PO
     Route: 048
     Dates: start: 20030827, end: 20031006
  2. DEPAMIDE [Suspect]
     Dosage: 900 MG DAILY PO
     Route: 048
     Dates: start: 20030721, end: 20031006
  3. FEMOSTON ^SOLVAY^ [Suspect]
     Dosage: 1 TAB
     Dates: start: 20021001, end: 20031001
  4. CHLORDESMETHYLDIAZEPAM [Concomitant]

REACTIONS (2)
  - BONE MARROW DEPRESSION [None]
  - PANCYTOPENIA [None]
